FAERS Safety Report 23682489 (Version 4)
Quarter: 2025Q3

REPORT INFORMATION
  Report Type: Spontaneous
  Country: EU (occurrence: EU)
  Receive Date: 20240328
  Receipt Date: 20250818
  Transmission Date: 20251021
  Serious: Yes (Death, Hospitalization, Other)
  Sender: NOVARTIS
  Company Number: EU-002147023-NVSC2024DE066264

PATIENT
  Sex: Male

DRUGS (1)
  1. GILENYA [Suspect]
     Active Substance: FINGOLIMOD HYDROCHLORIDE
     Indication: Relapsing-remitting multiple sclerosis
     Route: 065
     Dates: start: 201705, end: 202303

REACTIONS (6)
  - Cutaneous T-cell lymphoma [Fatal]
  - Lymphadenopathy [Unknown]
  - Lymph node pain [Unknown]
  - Lymphoproliferative disorder [Unknown]
  - Dermatitis exfoliative generalised [Unknown]
  - Multiple sclerosis relapse [Unknown]

NARRATIVE: CASE EVENT DATE: 20250601
